FAERS Safety Report 6123648-5 (Version None)
Quarter: 2009Q1

REPORT INFORMATION
  Report Type: 
  Country: None (occurrence: None)
  Receive Date: 20090318
  Receipt Date: 20090318
  Transmission Date: 20090719
  Serious: No
  Sender: FDA-Public Use
  Company Number: None

PATIENT
  Age: 41 Year
  Sex: Male

DRUGS (1)
  1. GLYBURIDE [Suspect]
     Dosage: 125 MG BID PO
     Route: 048
     Dates: start: 20090213, end: 20090216

REACTIONS (1)
  - HYPOGLYCAEMIA [None]
